FAERS Safety Report 7376096-4 (Version None)
Quarter: 2011Q1

REPORT INFORMATION
  Report Type: 
  Country: None (occurrence: None)
  Receive Date: 20110325
  Receipt Date: 20110316
  Transmission Date: 20110831
  Serious: Yes (Other)
  Sender: FDA-Public Use
  Company Number: DE-BRISTOL-MYERS SQUIBB COMPANY-15630064

PATIENT
  Age: 65 Year
  Sex: Male

DRUGS (3)
  1. ERBITUX [Suspect]
     Indication: COLORECTAL CANCER
     Dosage: RECENT DOSE: 28FEB2011
     Route: 042
     Dates: start: 20100501
  2. 5-FLUOROURACIL [Concomitant]
     Indication: COLORECTAL CANCER
  3. IRINOTECAN HYDROCHLORIDE [Concomitant]
     Indication: COLORECTAL CANCER
     Dates: start: 20100701

REACTIONS (1)
  - RETINAL DETACHMENT [None]
